FAERS Safety Report 4867596-7 (Version None)
Quarter: 2005Q4

REPORT INFORMATION
  Report Type: 
  Country: None (occurrence: None)
  Receive Date: 20051222
  Receipt Date: 20051215
  Transmission Date: 20060501
  Serious: Yes (Other)
  Sender: FDA-Public Use
  Company Number: A-US2005-11277

PATIENT
  Age: 55 Year
  Sex: Male
  Weight: 67.6 kg

DRUGS (5)
  1. TRACLEER [Suspect]
     Indication: PULMONARY HYPERTENSION
     Dosage: 125 MG, BID, ORAL; 62.5 MG, BID, ORAL
     Route: 048
     Dates: end: 20051025
  2. COZAAR [Concomitant]
  3. SILDENAFIL CITRATE [Concomitant]
  4. TRAMADOL HCL [Concomitant]
  5. MULTIVITAMIN ^LAPPE^ (VITMAINS NOS) [Concomitant]

REACTIONS (8)
  - ALANINE AMINOTRANSFERASE INCREASED [None]
  - ANXIETY [None]
  - ASPARTATE AMINOTRANSFERASE INCREASED [None]
  - COUGH [None]
  - DEPRESSION [None]
  - DISEASE PROGRESSION [None]
  - FATIGUE [None]
  - PULMONARY HYPERTENSION [None]
